FAERS Safety Report 4617470-6 (Version None)
Quarter: 2005Q1

REPORT INFORMATION
  Report Type: 
  Country: None (occurrence: None)
  Receive Date: 20050324
  Receipt Date: 20050314
  Transmission Date: 20050727
  Serious: Yes (Hospitalization, Other)
  Sender: FDA-Public Use
  Company Number: US-JNJFOC-20050304353

PATIENT
  Sex: Female

DRUGS (2)
  1. RISPERDAL CONSTA [Suspect]
     Indication: MILD MENTAL RETARDATION
     Route: 030
  2. RISPERDAL CONSTA [Suspect]
     Route: 030

REACTIONS (2)
  - BRAIN OEDEMA [None]
  - CEREBROVASCULAR ACCIDENT [None]
